FAERS Safety Report 4332098-3 (Version None)
Quarter: 2004Q2

REPORT INFORMATION
  Report Type: 
  Country: None (occurrence: None)
  Receive Date: 20040405
  Receipt Date: 20040323
  Transmission Date: 20050107
  Serious: Yes (Other)
  Sender: FDA-Public Use
  Company Number: GB-GLAXOSMITHKLINE-B0328131A

PATIENT
  Age: 63 Year
  Sex: Male

DRUGS (2)
  1. ALBUTEROL SULFATE [Suspect]
     Indication: ASTHMA
     Route: 042
  2. AMINOPHYLLINE [Concomitant]
     Indication: ASTHMA

REACTIONS (2)
  - LACTIC ACIDOSIS [None]
  - RESPIRATORY ACIDOSIS [None]
